FAERS Safety Report 8346206-0 (Version None)
Quarter: 2012Q2

REPORT INFORMATION
  Report Type: 
  Country: None (occurrence: None)
  Receive Date: 20120507
  Receipt Date: 20120430
  Transmission Date: 20120825
  Serious: Yes (Other)
  Sender: FDA-Public Use
  Company Number: 201205004

PATIENT
  Age: 70 Year
  Sex: Male

DRUGS (1)
  1. XIAFLEX [Suspect]
     Indication: DUPUYTREN'S CONTRACTURE
     Dosage: 1 IN 1 D, INTRALESIONAL
     Route: 026
     Dates: start: 20100101, end: 20100101

REACTIONS (4)
  - HEPATIC NEOPLASM MALIGNANT [None]
  - MUSCLE CONTRACTURE [None]
  - LENTIGO [None]
  - DISEASE RECURRENCE [None]
